FAERS Safety Report 10866396 (Version 1)
Quarter: 2015Q1

REPORT INFORMATION
  Report Type: Spontaneous
  Country: US (occurrence: None)
  Receive Date: 20150219
  Receipt Date: 20150219
  Transmission Date: 20150721
  Serious: Yes (Hospitalization)
  Sender: FDA-Public Use
  Company Number: None

PATIENT
  Age: 59 Year
  Sex: Male
  Weight: 69.1 kg

DRUGS (1)
  1. SUNITINIB MALATE (SU011248 L-MALATE) [Suspect]
     Active Substance: SUNITINIB MALATE
     Dates: start: 20140610, end: 20150203

REACTIONS (10)
  - Obstruction [None]
  - Malignant neoplasm progression [None]
  - Condition aggravated [None]
  - Abdominal hernia [None]
  - Abdominal pain upper [None]
  - Pancreatitis [None]
  - Metastases to pancreas [None]
  - Malignant neoplasm of unknown primary site [None]
  - Nausea [None]
  - Pancreatic mass [None]

NARRATIVE: CASE EVENT DATE: 20150209
